FAERS Safety Report 5688227-2 (Version None)
Quarter: 2008Q1

REPORT INFORMATION
  Report Type: 
  Country: None (occurrence: None)
  Receive Date: 20080327
  Receipt Date: 20080317
  Transmission Date: 20080703
  Serious: Yes (Other)
  Sender: FDA-Public Use
  Company Number: 100#08#2008-01599

PATIENT
  Age: 5 Year
  Sex: Male

DRUGS (1)
  1. CARBAMAZEPINE [Suspect]
     Indication: EPILEPSY
     Dosage: 50 MG TWICE DAILY
     Route: 048

REACTIONS (7)
  - APLASIA PURE RED CELL [None]
  - HAEMOGLOBINURIA [None]
  - HAEMOLYTIC ANAEMIA [None]
  - HEPATOSPLENOMEGALY [None]
  - HYPERBILIRUBINAEMIA [None]
  - SELENIUM DEFICIENCY [None]
  - TRANSAMINASES INCREASED [None]
